FAERS Safety Report 6840216-8 (Version None)
Quarter: 2010Q3

REPORT INFORMATION
  Report Type: 
  Country: None (occurrence: None)
  Receive Date: 20100713
  Receipt Date: 20100713
  Transmission Date: 20110219
  Serious: Yes (Other)
  Sender: FDA-Public Use
  Company Number: None

PATIENT
  Age: 63 Year
  Sex: Male
  Weight: 84.369 kg

DRUGS (1)
  1. HUMIRA [Suspect]
     Indication: CROHN'S DISEASE
     Dosage: HUMIRA 40MG SQ
     Route: 058
     Dates: start: 20100104, end: 20100412

REACTIONS (1)
  - PNEUMONIA CRYPTOCOCCAL [None]
